FAERS Safety Report 8345422-1 (Version None)
Quarter: 2012Q2

REPORT INFORMATION
  Report Type: 
  Country: None (occurrence: None)
  Receive Date: 20120504
  Receipt Date: 20120419
  Transmission Date: 20120825
  Serious: Yes (Hospitalization)
  Sender: FDA-Public Use
  Company Number: JP-2012-11918

PATIENT
  Age: 79 Year
  Sex: Male

DRUGS (8)
  1. KREMEZIN (CHARCOAL, ACTIVATED) [Concomitant]
  2. FAMOTIDINE [Concomitant]
  3. WARFARIN SODIUM [Concomitant]
  4. LANIRAPID (METILDIGOXIN) [Concomitant]
  5. PLETAL [Suspect]
     Indication: BRADYCARDIA
     Dosage: 100 MG MILLIGRAM(S), BID, ORAL
     Route: 048
     Dates: start: 20080820, end: 20120222
  6. AMOBAN (ZOPICLONE) [Concomitant]
  7. FERROMIA (SODIUM FERROUS CITRATE) [Concomitant]
  8. FUROSEMIDE [Concomitant]

REACTIONS (1)
  - INTERSTITIAL LUNG DISEASE [None]
